FAERS Safety Report 10012770 (Version 1)
Quarter: 2014Q1

REPORT INFORMATION
  Report Type: Spontaneous
  Country: DE (occurrence: DE)
  Receive Date: 20140314
  Receipt Date: 20140314
  Transmission Date: 20141002
  Serious: Yes (Hospitalization, Disabling)
  Sender: FDA-Public Use
  Company Number: DE-B.I. PHARMACEUTICALS,INC./RIDGEFIELD-2014-BI-10249DE

PATIENT
  Age: 59 Year
  Sex: Female
  Weight: 70 kg

DRUGS (7)
  1. PRADAXA [Suspect]
     Indication: CEREBRAL INFARCTION
     Route: 065
     Dates: start: 20140124
  2. KEPPRA [Suspect]
     Indication: EPILEPSY
     Dosage: STRENGTH:100
     Route: 048
     Dates: start: 20140106, end: 20140126
  3. VIMPAT [Suspect]
     Indication: PRODUCT USED FOR UNKNOWN INDICATION
     Dosage: STRENGTH:200
     Route: 065
     Dates: start: 20140110
  4. ORFIRIL [Suspect]
     Indication: PRODUCT USED FOR UNKNOWN INDICATION
     Dosage: STRENGTH:600
     Route: 048
     Dates: start: 20140116
  5. SIMVASTATIN [Concomitant]
     Indication: CEREBROVASCULAR ACCIDENT
     Route: 048
     Dates: start: 201301
  6. METOPROLOL [Concomitant]
     Route: 065
  7. RAMIPRIL [Concomitant]
     Route: 065

REACTIONS (1)
  - Renal infarct [Not Recovered/Not Resolved]
